FAERS Safety Report 12697013 (Version 1)
Quarter: 2016Q3

REPORT INFORMATION
  Report Type: Spontaneous
  Country: US (occurrence: None)
  Receive Date: 20160829
  Receipt Date: 20160829
  Transmission Date: 20161109
  Serious: Yes (Other)
  Sender: FDA-Public Use
  Company Number: None

PATIENT
  Age: 72 Year
  Sex: Male
  Weight: 99.79 kg

DRUGS (1)
  1. ANDRODERM [Suspect]
     Active Substance: TESTOSTERONE
     Indication: HORMONE REPLACEMENT THERAPY
     Dosage: 30 PATCH(ES) ONCE A DAY APPLIED AS MEDICATED PATCH TO SKIN
     Route: 061
     Dates: start: 20160705, end: 20160817

REACTIONS (5)
  - Application site induration [None]
  - Application site pruritus [None]
  - Dermatitis contact [None]
  - Application site vesicles [None]
  - Application site erythema [None]

NARRATIVE: CASE EVENT DATE: 20160807
